FAERS Safety Report 5427755-1 (Version None)
Quarter: 2007Q3

REPORT INFORMATION
  Report Type: 
  Country: None (occurrence: None)
  Receive Date: 20070828
  Receipt Date: 20070821
  Transmission Date: 20080115
  Serious: Yes (Hospitalization)
  Sender: FDA-Public Use
  Company Number: US-ELI_LILLY_AND_COMPANY-US200708002302

PATIENT
  Age: 79 Year
  Sex: Female

DRUGS (10)
  1. BYETTA [Suspect]
     Indication: TYPE 2 DIABETES MELLITUS
     Dosage: 10 UG, 2/D
     Route: 058
  2. BYETTA [Suspect]
     Dosage: 250 UG, OTHER
     Route: 065
     Dates: start: 20070809, end: 20070809
  3. GLIPIZIDE [Concomitant]
     Indication: DIABETES MELLITUS
     Dosage: 10 MG, DAILY (1/D)
  4. NOVOLIN R [Concomitant]
     Dosage: 30 U, EACH MORNING
     Route: 058
  5. NOVOLIN R [Concomitant]
     Dosage: 25 U, EACH EVENING
     Route: 058
  6. ASPIRIN [Concomitant]
     Dosage: 81 MG, DAILY (1/D)
  7. ATENOLOL [Concomitant]
     Dosage: 50 MG, DAILY (1/D)
  8. LIPITOR [Concomitant]
     Dosage: 40 MG, DAILY (1/D)
  9. FUROSEMIDE [Concomitant]
     Dosage: 40 MG, DAILY (1/D)
  10. ALLOPURINOL [Concomitant]
     Dosage: 200 MG, DAILY (1/D)

REACTIONS (6)
  - ACCIDENTAL OVERDOSE [None]
  - DIARRHOEA [None]
  - MEDICATION ERROR [None]
  - NAUSEA [None]
  - TACHYCARDIA [None]
  - VOMITING [None]
